FAERS Safety Report 24094725 (Version 1)
Quarter: 2024Q3

REPORT INFORMATION
  Report Type: Spontaneous
  Country: US (occurrence: None)
  Receive Date: 20240716
  Receipt Date: 20240716
  Transmission Date: 20241017
  Serious: Yes (Hospitalization)
  Sender: ASTRAZENECA
  Company Number: 2024A157235

PATIENT
  Age: 24 Year
  Sex: Female

DRUGS (2)
  1. BUDESONIDE [Suspect]
     Active Substance: BUDESONIDE
     Route: 055
  2. DUPIXENT [Concomitant]
     Active Substance: DUPILUMAB

REACTIONS (9)
  - Oropharyngeal pain [Unknown]
  - Throat tightness [Unknown]
  - Weight decreased [Unknown]
  - Depressed mood [Unknown]
  - Anxiety [Unknown]
  - Eosinophilic oesophagitis [Unknown]
  - Condition aggravated [Not Recovered/Not Resolved]
  - Oropharyngeal discomfort [Unknown]
  - Drug ineffective [Unknown]
